FAERS Safety Report 18296434 (Version 1)
Quarter: 2020Q3

REPORT INFORMATION
  Report Type: Spontaneous
  Country: US (occurrence: CA)
  Receive Date: 20200922
  Receipt Date: 20200922
  Transmission Date: 20201103
  Serious: Yes (Other)
  Sender: FDA-Public Use
  Company Number: US-BAYER-2020-192951

PATIENT
  Age: 28 Year
  Sex: Male
  Weight: 48.99 kg

DRUGS (4)
  1. CIPROFLOXACIN. [Suspect]
     Active Substance: CIPROFLOXACIN
     Indication: SKIN INFECTION
     Dosage: 500 MG, BID
     Route: 048
  2. GRAMICIDIN;NEOMYCIN SULFATE;POLYMYXIN B SULFATE [Concomitant]
     Active Substance: GRAMICIDIN\NEOMYCIN SULFATE\POLYMYXIN B SULFATE
     Indication: STOMA SITE IRRITATION
     Dosage: UNK
     Route: 061
  3. GRAMICIDIN;NEOMYCIN SULFATE;POLYMYXIN B SULFATE [Concomitant]
     Active Substance: GRAMICIDIN\NEOMYCIN SULFATE\POLYMYXIN B SULFATE
     Indication: SKIN INFECTION
     Dosage: UNK
  4. HUMIRA [Suspect]
     Active Substance: ADALIMUMAB
     Indication: CROHN^S DISEASE
     Dosage: UNK
     Route: 058

REACTIONS (4)
  - Staphylococcal infection [Not Recovered/Not Resolved]
  - Stoma site infection [Not Recovered/Not Resolved]
  - Rash [Not Recovered/Not Resolved]
  - Beta haemolytic streptococcal infection [Not Recovered/Not Resolved]
